FAERS Safety Report 25929770 (Version 1)
Quarter: 2025Q4

REPORT INFORMATION
  Report Type: Spontaneous
  Country: US (occurrence: US)
  Receive Date: 20251016
  Receipt Date: 20251016
  Transmission Date: 20260118
  Serious: Yes (Hospitalization, Other)
  Sender: Kenvue
  Company Number: None

PATIENT
  Age: 89 Year
  Sex: Female
  Weight: 34.3 kg

DRUGS (4)
  1. ACETAMINOPHEN [Suspect]
     Active Substance: ACETAMINOPHEN
     Indication: Cystitis
     Dosage: 1000 MILLIGRAM, EVERY 8 HOURS
     Route: 048
  2. ACETAMINOPHEN [Suspect]
     Active Substance: ACETAMINOPHEN
     Indication: Back pain
     Dosage: DOSES OF ACETAMINOPHEN REACHING NEARLY 30 MILLIGRAM/KILOGRAM/DOSE
     Route: 048
  3. ACETAMINOPHEN [Suspect]
     Active Substance: ACETAMINOPHEN
     Indication: Arthralgia
  4. CEPHALEXIN [Suspect]
     Active Substance: CEPHALEXIN
     Indication: Cystitis
     Route: 065

REACTIONS (5)
  - Acute hepatic failure [Unknown]
  - Acute kidney injury [Unknown]
  - Renal tubular necrosis [Recovered/Resolved]
  - Off label use [Unknown]
  - Toxicity to various agents [Unknown]
